FAERS Safety Report 14564211 (Version 4)
Quarter: 2018Q3

REPORT INFORMATION
  Report Type: Spontaneous
  Country: US (occurrence: US)
  Receive Date: 20180222
  Receipt Date: 20180726
  Transmission Date: 20181010
  Serious: No
  Sender: FDA-Public Use
  Company Number: US-INCYTE CORPORATION-2018IN001582

PATIENT

DRUGS (1)
  1. JAKAFI [Suspect]
     Active Substance: RUXOLITINIB
     Indication: MYELOFIBROSIS
     Dosage: 15 MG, BID
     Route: 048
     Dates: start: 20171023

REACTIONS (5)
  - Oropharyngeal pain [Recovering/Resolving]
  - Asthenia [Unknown]
  - Hyperhidrosis [Unknown]
  - Night sweats [Unknown]
  - Pyrexia [Unknown]

NARRATIVE: CASE EVENT DATE: 201802
